FAERS Safety Report 9390402 (Version 2)
Quarter: 2013Q4

REPORT INFORMATION
  Report Type: Spontaneous
  Country: US (occurrence: None)
  Receive Date: 20130701
  Receipt Date: 20131028
  Transmission Date: 20140711
  Serious: Yes (Hospitalization)
  Sender: FDA-Public Use
  Company Number: 2013US001641

PATIENT
  Age: 67 Year
  Sex: Male
  Weight: 77 kg

DRUGS (4)
  1. ICLUSIG [Suspect]
     Indication: ACUTE LYMPHOCYTIC LEUKAEMIA
     Route: 048
  2. PENTAMIDINE (PENTAMIDINE) [Concomitant]
  3. AMLODIPINE (AMLODIPINE) [Concomitant]
  4. ACYCLOVIR (ACYCLOVIR) [Concomitant]

REACTIONS (7)
  - Acute myocardial infarction [None]
  - Headache [None]
  - Glucose-6-phosphate dehydrogenase deficiency [None]
  - Pruritus [None]
  - Hypertension [None]
  - Gastritis [None]
  - Dry skin [None]
